FAERS Safety Report 8741076 (Version 4)
Quarter: 2015Q4

REPORT INFORMATION
  Report Type: Spontaneous
  Country: US (occurrence: US)
  Receive Date: 20120824
  Receipt Date: 20151016
  Transmission Date: 20160305
  Serious: Yes (Hospitalization, Other)
  Sender: FDA-Public Use
  Company Number: US-ASTRAZENECA-2011SE72600

PATIENT
  Age: 62 Year
  Sex: Female
  Weight: 77.1 kg

DRUGS (10)
  1. SYMBICORT [Suspect]
     Active Substance: BUDESONIDE\FORMOTEROL FUMARATE DIHYDRATE
     Indication: CHRONIC OBSTRUCTIVE PULMONARY DISEASE
     Dosage: 160-4.5 TWO PUFFS, TWO TIMES A DAY
     Route: 055
     Dates: start: 2012
  2. DUANEB [Concomitant]
     Dosage: UNKNOWN
  3. SYMBICORT [Suspect]
     Active Substance: BUDESONIDE\FORMOTEROL FUMARATE DIHYDRATE
     Indication: CHRONIC OBSTRUCTIVE PULMONARY DISEASE
     Dosage: 160/4.5 MCG ONE PUFF BID
     Route: 055
     Dates: start: 2011
  4. SINGULAIR [Concomitant]
     Active Substance: MONTELUKAST SODIUM
     Indication: CHRONIC OBSTRUCTIVE PULMONARY DISEASE
  5. SINGULAIR [Concomitant]
     Active Substance: MONTELUKAST SODIUM
     Indication: CHRONIC OBSTRUCTIVE PULMONARY DISEASE
  6. MULTIVITAMIN [Concomitant]
     Active Substance: VITAMINS
     Route: 048
  7. SYMBICORT [Suspect]
     Active Substance: BUDESONIDE\FORMOTEROL FUMARATE DIHYDRATE
     Indication: CHRONIC OBSTRUCTIVE PULMONARY DISEASE
     Dosage: 160/4.5 MCG ONE PUFF BID
     Route: 055
     Dates: start: 20111009, end: 20111125
  8. DUANEB [Concomitant]
     Dosage: TWO TIMES A DAY
     Route: 055
  9. PREDNISONE. [Suspect]
     Active Substance: PREDNISONE
     Route: 065
     Dates: start: 201501, end: 201501
  10. ALBUTEROL. [Concomitant]
     Active Substance: ALBUTEROL
     Dosage: PRN

REACTIONS (18)
  - Influenza [Recovered/Resolved]
  - Hunger [Unknown]
  - Incorrect dose administered by device [Unknown]
  - Blood pressure increased [Recovered/Resolved]
  - Adverse drug reaction [Unknown]
  - Hypersensitivity [Unknown]
  - Palpitations [Recovered/Resolved]
  - Dyspnoea [Unknown]
  - Sleep disorder due to a general medical condition [Unknown]
  - Cough [Unknown]
  - Dysphonia [Unknown]
  - Cataract [Unknown]
  - Oxygen saturation decreased [Recovered/Resolved]
  - Oropharyngeal pain [Unknown]
  - Loss of consciousness [Unknown]
  - Sinusitis [Unknown]
  - Hypersensitivity [Unknown]
  - Nervousness [Unknown]

NARRATIVE: CASE EVENT DATE: 2013
